FAERS Safety Report 5345187-1 (Version None)
Quarter: 2007Q2

REPORT INFORMATION
  Report Type: 
  Country: None (occurrence: None)
  Receive Date: 20070605
  Receipt Date: 20070524
  Transmission Date: 20071010
  Serious: Yes (Other)
  Sender: FDA-Public Use
  Company Number: US-BAYER-200711632BWH

PATIENT
  Age: 43 Year
  Sex: Male

DRUGS (2)
  1. LEVITRA [Suspect]
     Indication: ERECTILE DYSFUNCTION
     Dosage: TOTAL DAILY DOSE: 20 MG  UNIT DOSE: 20 MG
     Route: 048
     Dates: start: 20070430
  2. ALLEGRA [Concomitant]
     Indication: SEASONAL ALLERGY

REACTIONS (4)
  - PENILE PAIN [None]
  - PENIS DEVIATION [None]
  - PHIMOSIS [None]
  - SKIN DISCOLOURATION [None]
